FAERS Safety Report 5198083-7 (Version None)
Quarter: 2006Q4

REPORT INFORMATION
  Report Type: 
  Country: None (occurrence: None)
  Receive Date: 20061228
  Receipt Date: 20061213
  Transmission Date: 20070319
  Serious: Yes (Other)
  Sender: FDA-Public Use
  Company Number: 2006RR-04915

PATIENT
  Age: 48 Year
  Sex: Female

DRUGS (4)
  1. CARBILEV(LEVODOPA, CARBIDOPA) UNKNOWN [Suspect]
     Indication: PARKINSONISM
  2. SELEGILINE HCL [Concomitant]
  3. AMANTADINE HCL [Concomitant]
  4. PERGOLIDE [Concomitant]

REACTIONS (3)
  - DRUG EFFECT DECREASED [None]
  - DYSKINESIA [None]
  - ON AND OFF PHENOMENON [None]
